FAERS Safety Report 8256740-X (Version None)
Quarter: 2012Q2

REPORT INFORMATION
  Report Type: 
  Country: None (occurrence: None)
  Receive Date: 20120403
  Receipt Date: 20120328
  Transmission Date: 20120825
  Serious: Yes (Other)
  Sender: FDA-Public Use
  Company Number: JP-PFIZER INC-2012070030

PATIENT
  Age: 69 Year
  Sex: Female
  Weight: 60 kg

DRUGS (8)
  1. ALPRAZOLAM [Concomitant]
     Indication: INSOMNIA
     Dosage: 0.4 MG, 1X/DAY
     Route: 048
     Dates: start: 20100714
  2. SENNOSIDE A+B [Concomitant]
     Indication: CONSTIPATION
     Dosage: 12 MG, 1X/DAY
     Route: 048
     Dates: start: 20101201
  3. OMEPRAZOLE [Concomitant]
     Indication: GASTROOESOPHAGEAL REFLUX DISEASE
     Dosage: 20 MG, 1X/DAY
     Route: 048
     Dates: start: 20100710
  4. LOXONIN [Concomitant]
     Indication: UPPER RESPIRATORY TRACT INFLAMMATION
     Dosage: 60 MG, 3X/DAY
     Route: 048
     Dates: start: 20120305, end: 20120314
  5. VALSARTAN [Concomitant]
     Dosage: 80 MG, 1X/DAY
     Route: 048
     Dates: start: 20100405
  6. ZITHROMAX [Suspect]
     Indication: PNEUMONIA
     Dosage: 500 MG, 1X/DAY
     Route: 041
     Dates: start: 20120309, end: 20120309
  7. VALSARTAN [Concomitant]
     Indication: HYPERTENSION
     Dosage: 40 MG, 1X/DAY
     Route: 048
     Dates: start: 20100205, end: 20100404
  8. POLAPREZINC [Concomitant]
     Indication: GASTRITIS
     Dosage: 1 G, 2X/DAY
     Route: 048
     Dates: start: 20111107

REACTIONS (2)
  - CHEST PAIN [None]
  - BLOOD PRESSURE INCREASED [None]
